FAERS Safety Report 5585439-3 (Version None)
Quarter: 2008Q1

REPORT INFORMATION
  Report Type: 
  Country: None (occurrence: None)
  Receive Date: 20080109
  Receipt Date: 20071123
  Transmission Date: 20080703
  Serious: Yes (Death, Life-Threatening, Hospitalization, Other)
  Sender: FDA-Public Use
  Company Number: FR-BRISTOL-MYERS SQUIBB COMPANY-13925169

PATIENT
  Age: 42 Year
  Sex: Female
  Weight: 62 kg

DRUGS (16)
  1. HOLOXAN [Suspect]
     Indication: UTERINE CANCER
     Route: 042
     Dates: start: 20070904, end: 20070906
  2. UROMITEXAN [Suspect]
     Route: 042
     Dates: start: 20070904, end: 20070907
  3. ZOPHREN [Suspect]
     Route: 042
     Dates: start: 20070904, end: 20070907
  4. METHYLPREDNISOLONE [Suspect]
     Route: 042
     Dates: start: 20070904, end: 20070907
  5. BENZODIAZEPINE [Concomitant]
  6. LEXOMIL [Concomitant]
  7. OXYGEN [Concomitant]
  8. SKENAN [Concomitant]
  9. IRON [Concomitant]
  10. MIRTAZAPINE [Concomitant]
  11. BISACODYL [Concomitant]
  12. INEXIUM [Concomitant]
  13. PREVISCAN [Concomitant]
  14. SOLUPRED [Concomitant]
  15. EPREX [Concomitant]
     Dosage: 1DF=40000 UNITS
  16. DOXORUBICIN HCL [Concomitant]

REACTIONS (8)
  - ASTHENIA [None]
  - COMA [None]
  - COUGH [None]
  - DISEASE PROGRESSION [None]
  - DYSPNOEA [None]
  - ENCEPHALOPATHY [None]
  - FEBRILE BONE MARROW APLASIA [None]
  - HALLUCINATION [None]
